FAERS Safety Report 13794417 (Version 1)
Quarter: 2017Q3

REPORT INFORMATION
  Report Type: Spontaneous
  Country: US (occurrence: US)
  Receive Date: 20170726
  Receipt Date: 20170726
  Transmission Date: 20171127
  Serious: No
  Sender: FDA-Public Use
  Company Number: US-PFIZER INC-2017322251

PATIENT
  Age: 88 Year
  Sex: Female
  Weight: 58.97 kg

DRUGS (4)
  1. VITAMINS /00067501/ [Concomitant]
     Active Substance: VITAMINS
  2. MAGNESIUM [Concomitant]
     Active Substance: MAGNESIUM
  3. GABAPENTIN. [Suspect]
     Active Substance: GABAPENTIN
     Indication: HYPOAESTHESIA
     Dosage: UNK
     Dates: start: 201706, end: 201706
  4. LOVASTATIN. [Concomitant]
     Active Substance: LOVASTATIN

REACTIONS (4)
  - Pruritus [Recovered/Resolved]
  - Drug ineffective for unapproved indication [Not Recovered/Not Resolved]
  - Drug hypersensitivity [Unknown]
  - Insomnia [Recovered/Resolved]

NARRATIVE: CASE EVENT DATE: 201706
